FAERS Safety Report 4987277-9 (Version None)
Quarter: 2006Q2

REPORT INFORMATION
  Report Type: 
  Country: None (occurrence: None)
  Receive Date: 20060501
  Receipt Date: 20050105
  Transmission Date: 20061013
  Serious: Yes (Hospitalization, Other)
  Sender: FDA-Public Use
  Company Number: US-MERCK-0501USA00400

PATIENT
  Age: 61 Year
  Sex: Female
  Weight: 75 kg

DRUGS (7)
  1. VIOXX [Suspect]
     Indication: TENDONITIS
     Route: 048
  2. GLUCOPHAGE [Concomitant]
     Route: 065
  3. ASPIRIN [Concomitant]
     Route: 065
  4. [THERAPY UNSPECIFIED] [Concomitant]
     Route: 065
  5. CIPROFLOXACIN HCL [Concomitant]
     Route: 065
  6. ROCEPHIN [Concomitant]
     Indication: SWELLING
     Route: 065
  7. CLARITIN [Concomitant]
     Indication: HYPERSENSITIVITY
     Route: 065

REACTIONS (21)
  - ANGINA UNSTABLE [None]
  - BLOOD PRESSURE INCREASED [None]
  - BRONCHIAL HYPERACTIVITY [None]
  - BURNS FIRST DEGREE [None]
  - CARDIAC FAILURE CONGESTIVE [None]
  - CARDIAC MURMUR [None]
  - CARDIOMEGALY [None]
  - CHEST DISCOMFORT [None]
  - CORONARY ARTERY DISEASE [None]
  - COUGH [None]
  - DRUG HYPERSENSITIVITY [None]
  - DYSPNOEA [None]
  - HAEMORRHOIDS [None]
  - LUNG NEOPLASM [None]
  - MYOCARDIAL INFARCTION [None]
  - NASAL CONGESTION [None]
  - PYREXIA [None]
  - RHINORRHOEA [None]
  - TREATMENT NONCOMPLIANCE [None]
  - UPPER RESPIRATORY TRACT INFECTION [None]
  - VENTRICULAR EXTRASYSTOLES [None]
